FAERS Safety Report 10969005 (Version 2)
Quarter: 2015Q2

REPORT INFORMATION
  Report Type: Spontaneous
  Country: US (occurrence: US)
  Receive Date: 20150331
  Receipt Date: 20150424
  Transmission Date: 20150821
  Serious: Yes (Death, Other)
  Sender: FDA-Public Use
  Company Number: US-PAR PHARMACEUTICAL, INC-2015SCPR010443

PATIENT

DRUGS (1)
  1. FENTANYL CITRATE. [Suspect]
     Active Substance: FENTANYL CITRATE
     Indication: BREAKTHROUGH PAIN
     Dosage: 1 DF, EVERY 6 HOURS, AS NEEDED
     Dates: start: 20130318

REACTIONS (2)
  - Colon cancer [Fatal]
  - Death [Fatal]

NARRATIVE: CASE EVENT DATE: 2013
